FAERS Safety Report 9842772 (Version 1)
Quarter: 2014Q1

REPORT INFORMATION
  Report Type: Spontaneous
  Country: NL (occurrence: NL)
  Receive Date: 20140124
  Receipt Date: 20140124
  Transmission Date: 20141002
  Serious: Yes (Other)
  Sender: FDA-Public Use
  Company Number: PHHY2014NL008431

PATIENT
  Sex: Female

DRUGS (1)
  1. TETRACOSACTIDE [Suspect]
     Dosage: UNK UKN, UNK

REACTIONS (1)
  - Eye disorder [Recovered/Resolved]
